FAERS Safety Report 18462824 (Version 1)
Quarter: 2020Q4

REPORT INFORMATION
  Report Type: Spontaneous
  Country: GB (occurrence: GB)
  Receive Date: 20201104
  Receipt Date: 20201104
  Transmission Date: 20210114
  Serious: Yes (Disabling)
  Sender: FDA-Public Use
  Company Number: GB-PFIZER INC-2020424357

PATIENT
  Age: 84 Year
  Sex: Male

DRUGS (8)
  1. PHENOXYMETHYLPENICILLIN [Concomitant]
     Active Substance: PENICILLIN V
     Dosage: 8 DF, DAILY
     Dates: start: 20200803, end: 20200808
  2. LEVOTHYROXINE. [Concomitant]
     Active Substance: LEVOTHYROXINE
     Dosage: 1 DF, DAILY, EACH MORNING
     Dates: start: 20200703
  3. SODIUM CHLORIDE. [Concomitant]
     Active Substance: SODIUM CHLORIDE
     Dosage: UNK, USE AS DIRECTED
     Dates: start: 20200703
  4. SERTRALINE HCL [Suspect]
     Active Substance: SERTRALINE HYDROCHLORIDE
     Indication: DEPRESSED MOOD
     Dosage: 50 MG, DAILY, EACH MORNING
     Route: 048
     Dates: start: 20201006
  5. DUTASTERIDE. [Concomitant]
     Active Substance: DUTASTERIDE
     Dosage: 1 DF, DAILY
     Dates: start: 20200703
  6. LOSARTAN. [Concomitant]
     Active Substance: LOSARTAN
     Dosage: 1 DF, DAILY
     Dates: start: 20200703
  7. TAMSULOSIN HYDROCHLORIDE. [Concomitant]
     Active Substance: TAMSULOSIN HYDROCHLORIDE
     Dosage: 1 DF, DAILY
     Dates: start: 20200703
  8. AMLODIPINE [Concomitant]
     Active Substance: AMLODIPINE BESYLATE
     Dosage: 1 DF, DAILY
     Dates: start: 20200703

REACTIONS (2)
  - Nightmare [Recovering/Resolving]
  - Sleep disorder [Recovering/Resolving]

NARRATIVE: CASE EVENT DATE: 20201012
